FAERS Safety Report 6438734-X (Version None)
Quarter: 2009Q4

REPORT INFORMATION
  Report Type: 
  Country: None (occurrence: None)
  Receive Date: 20091113
  Receipt Date: 20091102
  Transmission Date: 20100525
  Serious: Yes (Hospitalization, Other)
  Sender: FDA-Public Use
  Company Number: US-RANBAXY-2009US-28518

PATIENT

DRUGS (13)
  1. IBUPROFEN [Suspect]
     Indication: PAIN
     Dosage: 600 MG, QD
     Route: 048
     Dates: start: 20090501
  2. ISOPTIN [Suspect]
     Indication: ATRIAL FIBRILLATION
     Dosage: UNK , UNK
     Route: 048
     Dates: start: 20070101
  3. HYDROMORPHONE HCL [Suspect]
     Indication: PAIN
     Dosage: 8 MG, UNK
     Route: 065
     Dates: start: 20090501, end: 20090824
  4. PALLADONE [Suspect]
     Indication: PAIN
     Dosage: 1.3 MG, UNK
     Route: 048
     Dates: start: 20090501, end: 20090826
  5. CELECOXIB [Concomitant]
     Indication: PAIN
     Dosage: 100 MG, QD
     Route: 048
     Dates: start: 20080101, end: 20090826
  6. DOMPERIDONE MALEATE [Concomitant]
     Indication: NAUSEA
     Dosage: 10 MG, TID
     Route: 048
     Dates: start: 20090501
  7. PHENPROCOUMON [Concomitant]
     Indication: ATRIAL FIBRILLATION
     Dosage: 6X1.5 MG+1X3 MG PER WEEK
     Route: 048
     Dates: end: 20090826
  8. PANTOPRAZOLE [Concomitant]
     Indication: PROPHYLAXIS AGAINST GASTROINTESTINAL ULCER
     Dosage: 10 MG, BID
     Route: 048
     Dates: start: 20080101
  9. PENTAERITHRITYL TETRANITRATE [Concomitant]
     Indication: CORONARY ARTERY DISEASE
     Dosage: 40 MG, QD
     Route: 048
  10. HYZAAR [Concomitant]
     Indication: HYPERTENSION
     Dosage: 100 MG/12.5 MG, QD
     Route: 048
  11. IBUPROFEN [Concomitant]
     Dosage: UNK
  12. JUMISTA [Concomitant]
     Indication: PAIN
     Dosage: 8 MG, QD
     Route: 048
     Dates: start: 20090501, end: 20090824
  13. PALLADONE [Concomitant]
     Dosage: 1.3 MG, QD
     Route: 048
     Dates: start: 20090501, end: 20090826

REACTIONS (3)
  - ABDOMINAL PAIN [None]
  - FAECALOMA [None]
  - HYPOKALAEMIA [None]
